FAERS Safety Report 5192041-4 (Version None)
Quarter: 2006Q4

REPORT INFORMATION
  Report Type: 
  Country: None (occurrence: None)
  Receive Date: 20061221
  Receipt Date: 20061221
  Transmission Date: 20070319
  Serious: Yes (Hospitalization)
  Sender: FDA-Public Use
  Company Number: None

PATIENT
  Age: 61 Year
  Sex: Female

DRUGS (2)
  1. MAXZIDE [Suspect]
     Indication: HYPERTENSION
  2. VERAPAMIL [Suspect]
     Indication: HYPERTENSION

REACTIONS (9)
  - ASTHENIA [None]
  - BLOOD OSMOLARITY DECREASED [None]
  - DIZZINESS [None]
  - HEADACHE [None]
  - MENTAL STATUS CHANGES [None]
  - NAUSEA [None]
  - THIRST [None]
  - URINE OSMOLARITY INCREASED [None]
  - VOMITING [None]
